FAERS Safety Report 12085539 (Version 1)
Quarter: 2016Q1

REPORT INFORMATION
  Report Type: Spontaneous
  Country: US (occurrence: US)
  Receive Date: 20160217
  Receipt Date: 20160217
  Transmission Date: 20160526
  Serious: Yes (Hospitalization)
  Sender: FDA-Public Use
  Company Number: US-PFIZER INC-2016094965

PATIENT
  Sex: Female

DRUGS (1)
  1. AROMASIN [Suspect]
     Active Substance: EXEMESTANE

REACTIONS (2)
  - Fall [Unknown]
  - Pelvic fracture [Unknown]
